FAERS Safety Report 7915879-6 (Version None)
Quarter: 2011Q4

REPORT INFORMATION
  Report Type: 
  Country: None (occurrence: None)
  Receive Date: 20111115
  Receipt Date: 20111103
  Transmission Date: 20120403
  Serious: Yes (Death, Hospitalization)
  Sender: FDA-Public Use
  Company Number: MX-PFIZER INC-2011279458

PATIENT
  Age: 84 Year
  Sex: Male

DRUGS (3)
  1. AMIODARONE HCL [Suspect]
     Indication: ARRHYTHMIA
     Dosage: 200 MG, 1X/DAY
     Route: 048
     Dates: start: 20100701, end: 20111029
  2. LANTUS [Suspect]
     Indication: TYPE 2 DIABETES MELLITUS
     Dosage: 16 INTERNATIONAL UNITS DAILY
     Route: 058
     Dates: start: 20090101, end: 20111029
  3. AMARYL [Concomitant]
     Dosage: UNK
     Dates: start: 20090101, end: 20090101

REACTIONS (4)
  - ARRHYTHMIA [None]
  - RENAL FAILURE [None]
  - CARDIAC ARREST [None]
  - HYPERGLYCAEMIA [None]
